FAERS Safety Report 13815119 (Version 2)
Quarter: 2017Q4

REPORT INFORMATION
  Report Type: Spontaneous
  Country: US (occurrence: US)
  Receive Date: 20170731
  Receipt Date: 20171011
  Transmission Date: 20180320
  Serious: Yes (Other)
  Sender: FDA-Public Use
  Company Number: US-BAYER-2017-143613

PATIENT
  Age: 29 Year
  Sex: Female
  Weight: 63.49 kg

DRUGS (1)
  1. MIRENA [Suspect]
     Active Substance: LEVONORGESTREL
     Dosage: 20 MCG/24HR, CONT
     Route: 015
     Dates: start: 20130508, end: 20150714

REACTIONS (10)
  - Somnolence [None]
  - Dysmenorrhoea [None]
  - Ovarian perforation [None]
  - Fatigue [None]
  - Uterine perforation [None]
  - Anxiety [None]
  - Abdominal pain lower [None]
  - Loss of personal independence in daily activities [None]
  - Depression [None]
  - Device issue [None]

NARRATIVE: CASE EVENT DATE: 2010
